FAERS Safety Report 6098916-6 (Version None)
Quarter: 2009Q1

REPORT INFORMATION
  Report Type: 
  Country: None (occurrence: None)
  Receive Date: 20090302
  Receipt Date: 20090223
  Transmission Date: 20090719
  Serious: Yes (Death, Hospitalization)
  Sender: FDA-Public Use
  Company Number: CA-JNJFOC-20090205757

PATIENT
  Sex: Male
  Weight: 81.8 kg

DRUGS (1)
  1. REMICADE [Suspect]
     Indication: RHEUMATOID ARTHRITIS
     Dosage: RECEIVED 2 DOSES
     Route: 042

REACTIONS (3)
  - AORTIC DISSECTION [None]
  - CARDIO-RESPIRATORY ARREST [None]
  - DEATH [None]
